FAERS Safety Report 17325352 (Version 3)
Quarter: 2020Q1

REPORT INFORMATION
  Report Type: Spontaneous
  Country: GR (occurrence: GR)
  Receive Date: 20200127
  Receipt Date: 20200304
  Transmission Date: 20200409
  Serious: Yes (Hospitalization, Other)
  Sender: FDA-Public Use
  Company Number: NVSC2020GR018123

PATIENT
  Age: 48 Year
  Sex: Female

DRUGS (5)
  1. HOLOXAN [Suspect]
     Active Substance: IFOSFAMIDE
     Indication: SARCOMA METASTATIC
     Dosage: 3000 MG/M2, 3 WEEK (ON D1-D3)
     Route: 042
  2. UROMITEXAN [Suspect]
     Active Substance: MESNA
     Indication: SARCOMA METASTATIC
     Dosage: 3000 MG/M2, ON D1- D4
     Route: 042
  3. FILGRASTIM [Suspect]
     Active Substance: FILGRASTIM
     Dosage: D5-D12
     Route: 058
  4. FILGRASTIM [Suspect]
     Active Substance: FILGRASTIM
     Indication: SARCOMA METASTATIC
     Dosage: 48 MIU, ON D5-D12
     Route: 058
  5. CAELYX [Suspect]
     Active Substance: DOXORUBICIN HYDROCHLORIDE
     Indication: SARCOMA METASTATIC
     Dosage: 25 MG/M2, ON D1
     Route: 042

REACTIONS (9)
  - Febrile neutropenia [Unknown]
  - Anaemia [Unknown]
  - Toxic encephalopathy [Recovered/Resolved]
  - Chronic kidney disease [Unknown]
  - Therapy partial responder [Unknown]
  - Pyelonephritis [Unknown]
  - Off label use [Unknown]
  - Thrombocytopenia [Unknown]
  - Product use in unapproved indication [Unknown]
